FAERS Safety Report 7080300-X (Version None)
Quarter: 2010Q4

REPORT INFORMATION
  Report Type: 
  Country: None (occurrence: None)
  Receive Date: 20101103
  Receipt Date: 20101020
  Transmission Date: 20110411
  Serious: Yes (Hospitalization)
  Sender: FDA-Public Use
  Company Number: GB-RANBAXY-2010RR-35837

PATIENT
  Sex: Female

DRUGS (8)
  1. SERTRALINE HYDROCHLORIDE [Suspect]
     Indication: DEPRESSION
     Dosage: 50 MG, QD
  2. DOSULEPIN [Suspect]
     Indication: INSOMNIA
     Dosage: 25 MG, QD
  3. ARIPIPRAZOLE [Concomitant]
     Dosage: 15 MG, UNK
  4. CITALOPRAM HYDROBROMIDE [Concomitant]
  5. DIAZEPAM [Concomitant]
     Indication: PSYCHOTIC DISORDER
     Dosage: 5 MG, UNK
  6. FLUOXETINE [Concomitant]
     Indication: DEPRESSION
     Dosage: 20 MG, QD
  7. OLANZAPINE [Concomitant]
     Dosage: 10 MG, UNK
  8. TRIFLUOPERAZINE HCL [Concomitant]
     Indication: PSYCHOTIC DISORDER
     Dosage: 1 MG, UNK

REACTIONS (2)
  - DRUG INTERACTION [None]
  - MANIA [None]
